FAERS Safety Report 7353219-4 (Version None)
Quarter: 2011Q1

REPORT INFORMATION
  Report Type: 
  Country: None (occurrence: None)
  Receive Date: 20110315
  Receipt Date: 20110310
  Transmission Date: 20110831
  Serious: Yes (Other)
  Sender: FDA-Public Use
  Company Number: US-PFIZER INC-2011054207

PATIENT
  Sex: Female
  Weight: 70.295 kg

DRUGS (4)
  1. METOPROLOL SUCCINATE [Suspect]
     Indication: HYPERTENSION
     Dosage: UNK DOSE, EVERY OTHER DAY
     Dates: start: 20110201
  2. NEXIUM [Concomitant]
     Dosage: UNK
  3. CADUET [Suspect]
     Indication: HYPERTENSION
     Dosage: AMLODINPINE BESILATE 10 MG, ATORVASTATIN CALCIUM 40 MG
     Route: 048
     Dates: end: 20110201
  4. LEXAPRO [Concomitant]
     Indication: MENOPAUSE
     Dosage: 20 MG, ALTERNATE DAY

REACTIONS (6)
  - DYSPNOEA [None]
  - THINKING ABNORMAL [None]
  - CHOKING SENSATION [None]
  - BLOOD PRESSURE INCREASED [None]
  - EXPIRED DRUG ADMINISTERED [None]
  - FEELING ABNORMAL [None]
